FAERS Safety Report 6194730-1 (Version None)
Quarter: 2009Q2

REPORT INFORMATION
  Report Type: 
  Country: None (occurrence: None)
  Receive Date: 20090519
  Receipt Date: 20090508
  Transmission Date: 20091009
  Serious: Yes (Other)
  Sender: FDA-Public Use
  Company Number: AT-BIOGENIDEC-2009BI009900

PATIENT
  Age: 63 Year
  Sex: Female

DRUGS (2)
  1. TYSABRI [Suspect]
     Indication: MULTIPLE SCLEROSIS
     Route: 042
     Dates: start: 20071211
  2. TRAMADOL HYDROCHLORIDE [Concomitant]
     Indication: BACK PAIN

REACTIONS (4)
  - DECREASED APPETITE [None]
  - NAUSEA [None]
  - NEOPLASM MALIGNANT [None]
  - WEIGHT DECREASED [None]
